FAERS Safety Report 24219359 (Version 4)
Quarter: 2024Q4

REPORT INFORMATION
  Report Type: Report from Study
  Country: US (occurrence: US)
  Receive Date: 20240816
  Receipt Date: 20241128
  Transmission Date: 20250115
  Serious: No
  Sender: ALEXION PHARMACEUTICALS
  Company Number: US-AstraZeneca-CH-00681926A

PATIENT
  Weight: 128.35 kg

DRUGS (1)
  1. ULTOMIRIS [Suspect]
     Active Substance: RAVULIZUMAB-CWVZ
     Indication: Myasthenia gravis
     Dosage: 3600 MILLIGRAM, EVERY 8 WEEKS
     Route: 065

REACTIONS (10)
  - Nasal congestion [Unknown]
  - Sinus congestion [Unknown]
  - Asthenopia [Unknown]
  - Eye movement disorder [Unknown]
  - Fatigue [Not Recovered/Not Resolved]
  - Rhinorrhoea [Not Recovered/Not Resolved]
  - Eye degenerative disorder [Unknown]
  - Increased upper airway secretion [Unknown]
  - Muscle spasms [Unknown]
  - Dizziness [Unknown]
